FAERS Safety Report 20942643 (Version 5)
Quarter: 2022Q3

REPORT INFORMATION
  Report Type: Report from Study
  Country: US (occurrence: US)
  Receive Date: 20220610
  Receipt Date: 20220912
  Transmission Date: 20221027
  Serious: No
  Sender: FDA-Public Use
  Company Number: US-NOVARTISTESTPH-NVSC2022US133305

PATIENT
  Sex: Female

DRUGS (1)
  1. COSENTYX [Suspect]
     Active Substance: SECUKINUMAB
     Indication: Psoriasis
     Dosage: 300 MG, QW (EVERY WEEK FOR 5 WEEKS THEN EVERY 4 WEEKS)
     Route: 058
     Dates: start: 20220510

REACTIONS (3)
  - Injection site bruising [Unknown]
  - Skin discolouration [Recovering/Resolving]
  - Therapeutic product effect incomplete [Unknown]
